FAERS Safety Report 6659161-6 (Version None)
Quarter: 2010Q1

REPORT INFORMATION
  Report Type: 
  Country: None (occurrence: None)
  Receive Date: 20100330
  Receipt Date: 20100316
  Transmission Date: 20100710
  Serious: No
  Sender: FDA-Public Use
  Company Number: US-BIOGENIDEC-2010BI009121

PATIENT
  Age: 37 Year
  Sex: Female

DRUGS (3)
  1. TYSABRI [Suspect]
     Indication: MULTIPLE SCLEROSIS
     Route: 042
     Dates: start: 20070702, end: 20090115
  2. TYSABRI [Suspect]
     Route: 042
     Dates: start: 20090608
  3. BACLOFEN [Concomitant]
     Indication: MUSCLE SPASTICITY

REACTIONS (1)
  - FATIGUE [None]
